FAERS Safety Report 12131649 (Version 2)
Quarter: 2016Q1

REPORT INFORMATION
  Report Type: Spontaneous
  Country: US (occurrence: US)
  Receive Date: 20160301
  Receipt Date: 20160324
  Transmission Date: 20160526
  Serious: Yes (Other)
  Sender: FDA-Public Use
  Company Number: US-JNJFOC-20160117988

PATIENT
  Age: 20 Year
  Sex: Female
  Weight: 57.6 kg

DRUGS (7)
  1. ORTHO TRI CYCLEN [Concomitant]
     Active Substance: ETHINYL ESTRADIOL\NORGESTIMATE
     Indication: ORAL CONTRACEPTION
     Dosage: (0.18/ 0.215/ 0.25MG-35MCG)
     Route: 065
     Dates: start: 201506
  2. REMICADE [Suspect]
     Active Substance: INFLIXIMAB
     Indication: CROHN^S DISEASE
     Route: 042
     Dates: start: 201503
  3. CEFTIN [Concomitant]
     Active Substance: CEFUROXIME AXETIL
     Indication: PHARYNGITIS
     Dosage: 500 BID FOR 10 DAYS
     Dates: start: 20160115, end: 20160119
  4. RETIN-A [Concomitant]
     Active Substance: TRETINOIN
     Indication: ACNE
     Dosage: QHS (BEDTIME)
     Route: 065
     Dates: start: 201508
  5. VITRON-C [Concomitant]
     Indication: IRON DEFICIENCY
     Dosage: 65 TO 125 TWO TIMES A DAY
     Route: 065
     Dates: start: 201506
  6. REMICADE [Suspect]
     Active Substance: INFLIXIMAB
     Indication: CROHN^S DISEASE
     Dosage: EVERY 7-8 WEEKS
     Route: 042
     Dates: start: 20160108
  7. FLOVENT [Concomitant]
     Active Substance: FLUTICASONE PROPIONATE
     Indication: ASTHMA
     Dosage: 2 PUFFS
     Route: 065
     Dates: start: 201412

REACTIONS (1)
  - Peritonsillar abscess [Recovered/Resolved]

NARRATIVE: CASE EVENT DATE: 201512
